APPROVED DRUG PRODUCT: CETIRIZINE HYDROCHLORIDE
Active Ingredient: CETIRIZINE HYDROCHLORIDE
Strength: 5MG/5ML
Dosage Form/Route: SOLUTION;ORAL
Application: A090191 | Product #001 | TE Code: AA
Applicant: BAJAJ MEDICAL LLC
Approved: Nov 12, 2009 | RLD: No | RS: No | Type: RX